FAERS Safety Report 7841468-8 (Version None)
Quarter: 2011Q4

REPORT INFORMATION
  Report Type: 
  Country: None (occurrence: None)
  Receive Date: 20111025
  Receipt Date: 20111018
  Transmission Date: 20120403
  Serious: Yes (Death, Hospitalization)
  Sender: FDA-Public Use
  Company Number: IE-CELGENEUS-229-21880-11060739

PATIENT
  Sex: Female

DRUGS (18)
  1. PLAVIX [Concomitant]
     Dosage: 75 MILLIGRAM
     Route: 065
     Dates: start: 20080108
  2. ASCENSIA MICROFILL TEST STRIPS [Concomitant]
     Route: 065
     Dates: start: 20070201
  3. GLYTRIN [Concomitant]
     Dosage: PUFF
     Route: 065
     Dates: start: 20070730
  4. TRAMADOL HCL [Suspect]
     Route: 065
     Dates: start: 20080318
  5. TRAVATAN [Concomitant]
     Dosage: 2.5 MILLIGRAM
     Route: 065
     Dates: start: 20080108
  6. MICROLET ASCENSIA LANCETS TYPE C GMS [Concomitant]
     Route: 065
     Dates: start: 20070201
  7. SERTRALINE HYDROCHLORIDE [Concomitant]
     Dosage: 2 TABLET
     Route: 065
     Dates: start: 20080711
  8. SEROQUEL [Concomitant]
     Dosage: .5 TABLET
     Route: 065
     Dates: start: 20080304
  9. SERTRALINE HYDROCHLORIDE [Concomitant]
     Dosage: 1 TABLET
     Route: 065
     Dates: start: 20110314
  10. ROMAX [Concomitant]
     Route: 065
     Dates: start: 20080108
  11. NEBIVOLOL HCL [Concomitant]
     Dosage: 1 TABLET
     Route: 065
     Dates: start: 20080108
  12. SERTRALINE HYDROCHLORIDE [Concomitant]
     Dosage: 1 TABLET
     Route: 065
     Dates: start: 20110304
  13. XANAX [Concomitant]
     Route: 065
     Dates: start: 20080108
  14. PROTELOS [Concomitant]
     Dosage: 1 DOSAGE FORMS
     Route: 065
     Dates: start: 20080225
  15. IDEOS CHEWABLE TABS [Concomitant]
     Dates: start: 20080108
  16. COVERSYL ARGININE [Concomitant]
     Dosage: .5 TABLET
     Route: 065
     Dates: start: 20080108
  17. REVLIMID [Suspect]
     Indication: MULTIPLE MYELOMA
     Dosage: 10 MILLIGRAM
     Route: 048
     Dates: start: 20080501, end: 20080101
  18. DUPHALAC [Concomitant]
     Route: 065
     Dates: start: 20080318

REACTIONS (4)
  - PNEUMONIA [None]
  - UROSEPSIS [None]
  - FEMORAL NECK FRACTURE [None]
  - MULTIPLE MYELOMA [None]
